FAERS Safety Report 7425148-9 (Version None)
Quarter: 2011Q2

REPORT INFORMATION
  Report Type: 
  Country: None (occurrence: None)
  Receive Date: 20110412
  Receipt Date: 20110328
  Transmission Date: 20111010
  Serious: Yes (Other)
  Sender: FDA-Public Use
  Company Number: 2011P1005455

PATIENT
  Age: 78 Year
  Sex: Female

DRUGS (7)
  1. VERAPAMIL [Concomitant]
  2. TERCONAZOLE [Suspect]
     Indication: FUNGAL INFECTION
     Dosage: X1;VAG
     Route: 067
     Dates: start: 20110101, end: 20110101
  3. NYSTATIN + TRIAMCINOLONE ACETONIDE [Suspect]
     Indication: FUNGAL INFECTION
     Dosage: X1;VAG
     Route: 067
     Dates: start: 20110101, end: 20110101
  4. LEVOTHYROXINE SODIUM [Concomitant]
  5. KLOR-CON [Concomitant]
  6. CHLORTHALIDONE [Concomitant]
  7. COUMADIN [Concomitant]

REACTIONS (2)
  - APPLICATION SITE PAIN [None]
  - DRUG DISPENSING ERROR [None]
